FAERS Safety Report 6393538-1 (Version None)
Quarter: 2009Q4

REPORT INFORMATION
  Report Type: 
  Country: None (occurrence: None)
  Receive Date: 20091008
  Receipt Date: 20090930
  Transmission Date: 20100525
  Serious: Yes (Hospitalization)
  Sender: FDA-Public Use
  Company Number: B0592318A

PATIENT
  Sex: Female
  Weight: 69 kg

DRUGS (6)
  1. ROPINIROLE [Suspect]
     Indication: PARKINSON'S DISEASE
     Dates: start: 20090128, end: 20090522
  2. RASAGILINE MESILATE [Concomitant]
     Dosage: 5MG PER DAY
     Dates: start: 20081128
  3. LEVODOPA BENSERAZIDE [Concomitant]
     Dosage: 125MG THREE TIMES PER DAY
     Dates: start: 20090523
  4. CLOPIDOGREL [Concomitant]
     Dosage: 75MG PER DAY
     Dates: start: 19990601
  5. FENOFIBRATE [Concomitant]
     Dosage: 145MG PER DAY
     Dates: start: 20050501
  6. OMEPRAZOLE [Concomitant]
     Indication: GASTROINTESTINAL ULCER
     Dosage: 20MG PER DAY
     Dates: start: 20000401

REACTIONS (2)
  - ANXIETY [None]
  - DEEP VEIN THROMBOSIS [None]
